APPROVED DRUG PRODUCT: DEXFERRUM
Active Ingredient: IRON DEXTRAN
Strength: EQ 50MG IRON/ML
Dosage Form/Route: INJECTABLE;INJECTION
Application: N040024 | Product #001
Applicant: AMERICAN REGENT INC
Approved: Feb 23, 1996 | RLD: No | RS: No | Type: DISCN